FAERS Safety Report 8265676-X (Version None)
Quarter: 2012Q2

REPORT INFORMATION
  Report Type: 
  Country: None (occurrence: None)
  Receive Date: 20120403
  Receipt Date: 20120322
  Transmission Date: 20120825
  Serious: Yes (Hospitalization, Other)
  Sender: FDA-Public Use
  Company Number: AUR-APL-2012-01601

PATIENT
  Age: 81 Year
  Sex: Female

DRUGS (7)
  1. RIVASTIGIME TARTRATE [Suspect]
     Indication: DEMENTIA ALZHEIMER'S TYPE
     Dosage: (1 DOSAGE FORMS, 1 D), ORAL
     Route: 048
     Dates: start: 20100101, end: 20120306
  2. MINITRAN [Suspect]
     Indication: MYOCARDIAL ISCHAEMIA
     Dosage: (1 DOSAGE FORMS, 1 D0, TRANSDERMAL
     Route: 062
     Dates: start: 20100101, end: 20120306
  3. RAMIPRIL [Suspect]
     Indication: HYPERTENSION
     Dosage: (1 DOSAGE FORMS), ORAL
     Route: 048
  4. ESCITALOPRAM OXALATE [Suspect]
     Indication: DEPRESSION
     Dosage: (1 DOSAGE FORMS), ORAL
     Route: 048
  5. AMLODIPINE BESYLATE [Suspect]
     Indication: MYOCARDIAL ISCHAEMIA
     Dosage: (1 DOSAGE FORMS), ORAL
     Route: 048
  6. ASPIRIN [Suspect]
     Indication: CARDIOVASCULAR EVENT PROPHYLAXIS
     Dosage: 91 DOSAGE FORMS), ORAL
     Route: 048
  7. ATENOLOL [Suspect]
     Indication: ATRIAL FIBRILLATION
     Dosage: (100 MG, 1 D), ORAL
     Route: 048
     Dates: start: 20100101, end: 20120306

REACTIONS (3)
  - SYNCOPE [None]
  - ATRIAL FIBRILLATION [None]
  - BRADYARRHYTHMIA [None]
